FAERS Safety Report 13082411 (Version 5)
Quarter: 2017Q2

REPORT INFORMATION
  Report Type: Spontaneous
  Country: US (occurrence: US)
  Receive Date: 20170103
  Receipt Date: 20170616
  Transmission Date: 20170830
  Serious: Yes (Death)
  Sender: FDA-Public Use
  Company Number: US-PFIZER INC-2016604670

PATIENT
  Age: 44 Year
  Sex: Female
  Weight: 87.53 kg

DRUGS (37)
  1. ZOFRAN [Concomitant]
     Active Substance: ONDANSETRON HYDROCHLORIDE
     Indication: VOMITING
  2. GUAIFENESIN. [Concomitant]
     Active Substance: GUAIFENESIN
     Indication: COUGH
     Dosage: 5 ML, AS NEEDED [Q 4 HRS AS NEEDED]
     Route: 048
     Dates: start: 20161208
  3. ROXANOL [Concomitant]
     Active Substance: MORPHINE SULFATE
     Indication: DYSPNOEA
  4. HEPARIN LOCK FLUSH [Concomitant]
     Active Substance: HEPARIN SODIUM
     Indication: ANTICOAGULANT THERAPY
     Dosage: 500 IU, MONTHLY [ONCE PER MONTH]
     Route: 042
     Dates: start: 20160715
  5. ASPIRIN. [Concomitant]
     Active Substance: ASPIRIN
     Indication: CARDIAC DISORDER
     Dosage: 81 MG, 1X/DAY
     Route: 048
     Dates: start: 20160715
  6. ZOFRAN [Concomitant]
     Active Substance: ONDANSETRON HYDROCHLORIDE
     Indication: NAUSEA
     Dosage: 8 MG, AS NEEDED (Q4-6HRS PRN )
     Route: 048
     Dates: start: 20161229
  7. VITAMIN B12 [Concomitant]
     Active Substance: CYANOCOBALAMIN
     Indication: NUTRITIONAL SUPPLEMENTATION
     Dosage: 1000 UG, 1X/DAY
     Route: 048
     Dates: start: 20160715
  8. LYRICA [Suspect]
     Active Substance: PREGABALIN
     Indication: NEUROPATHY PERIPHERAL
     Dosage: 150 MG, DAILY
     Route: 048
  9. PRILOSEC [Concomitant]
     Active Substance: OMEPRAZOLE MAGNESIUM
     Indication: GASTROOESOPHAGEAL REFLUX DISEASE
     Dosage: 20 MG, 1X/DAY
     Route: 048
     Dates: start: 20161229
  10. HALOPERIDOL. [Concomitant]
     Active Substance: HALOPERIDOL
     Indication: NAUSEA
  11. SENNA PLUS [Concomitant]
     Active Substance: DOCUSATE SODIUM\SENNOSIDES\SENNOSIDES A AND B
     Indication: CONSTIPATION
     Dosage: 1-2 TABLET, 8.6 MG-50 MG TABLET, 2 X DAY AS NEEDED
     Route: 048
     Dates: start: 20160715
  12. METOCLOPRAMIDE HCL [Concomitant]
     Active Substance: METOCLOPRAMIDE HYDROCHLORIDE
     Indication: NAUSEA
     Dosage: 10 MG, 3X/DAY
     Route: 048
     Dates: start: 20160715
  13. POTASSIUM CHLORIDE. [Concomitant]
     Active Substance: POTASSIUM CHLORIDE
     Indication: NUTRITIONAL SUPPLEMENTATION
     Dosage: 15 ML, 1X/DAY ((20 % LIQUID) )
     Route: 048
     Dates: start: 20170227
  14. MILK OF MAGNESIA [Concomitant]
     Active Substance: MAGNESIUM HYDROXIDE
     Indication: CONSTIPATION
     Dosage: 400 MG, AS NEEDED (Q 72 HRS)
     Route: 048
     Dates: start: 20160804
  15. HALOPERIDOL. [Concomitant]
     Active Substance: HALOPERIDOL
     Indication: AGITATION
     Dosage: 2-4MG OF HALOPERIDOL TABLET (2 MG TABLET) Q 6 HRS
     Route: 048
     Dates: start: 20160718
  16. PROAIR HFA [Concomitant]
     Active Substance: ALBUTEROL SULFATE
     Indication: DYSPNOEA
     Dosage: 180 UG, AS NEEDED (90 MCG/ACTUATION; Q 4 - 6HRS)
     Route: 048
     Dates: start: 20160715
  17. VITAMIN C [Concomitant]
     Active Substance: ASCORBIC ACID
     Indication: NUTRITIONAL SUPPLEMENTATION
     Dosage: 1000 MG, 1X/DAY
     Route: 048
     Dates: start: 20160715
  18. ELAVIL [Concomitant]
     Active Substance: AMITRIPTYLINE HYDROCHLORIDE
     Indication: NEUROPATHY PERIPHERAL
     Dosage: 25 MG, 1X/DAY (QHS)
     Route: 048
     Dates: start: 20161227
  19. NORMAL SALINE [Concomitant]
     Active Substance: SODIUM CHLORIDE
     Indication: DEHYDRATION
     Dosage: 1000 L, 1X/DAY
     Route: 058
     Dates: start: 20161027
  20. ATROPINE. [Concomitant]
     Active Substance: ATROPINE
     Indication: NASAL CONGESTION
     Dosage: UNK, AS NEEDED (2-4 GTTS OF ATROPINE DROPS)
     Route: 047
     Dates: start: 20160715
  21. ALOES /00257301/ [Concomitant]
     Indication: SKIN DISORDER
     Dosage: 1 INCH OF ALOE VESTA OINTMENT, 2X DAY AND AS NEEDED
     Route: 061
     Dates: start: 20160715
  22. DIAZEPAM. [Concomitant]
     Active Substance: DIAZEPAM
     Indication: ANXIETY
     Dosage: 10 MG, AS NEEDED (3 X DAY)
     Route: 048
     Dates: start: 20160715
  23. MELOXICAM. [Concomitant]
     Active Substance: MELOXICAM
     Indication: PAIN
     Dosage: 15 MG, 1X/DAY
     Route: 048
     Dates: start: 20161220
  24. LACTULOSE. [Concomitant]
     Active Substance: LACTULOSE
     Indication: CONSTIPATION
     Dosage: 10 G, AS NEEDED (2XDAY)
     Route: 048
     Dates: start: 20160825
  25. ROXANOL [Concomitant]
     Active Substance: MORPHINE SULFATE
     Indication: PAIN
     Dosage: 5-10MG OF CONCENTRATE SOLUTION, Q 1-2 HRS PRN
     Route: 048
     Dates: start: 20160718
  26. DUONEB [Concomitant]
     Active Substance: ALBUTEROL SULFATE\IPRATROPIUM BROMIDE
     Indication: DYSPNOEA
     Dosage: 0.5 MG - 3 MG(2.5 MG BASE)/3 ML SOLUTION)/Q 4 - 6 HRS PRN
     Route: 048
     Dates: start: 20160715
  27. PAROXETINE HCL [Concomitant]
     Active Substance: PAROXETINE HYDROCHLORIDE
     Indication: DEPRESSION
     Dosage: 10 MG, 1X/DAY
     Route: 048
     Dates: start: 20160715
  28. LASIX [Concomitant]
     Active Substance: FUROSEMIDE
     Indication: OEDEMA
     Dosage: 20 MG, AS NEEDED (1 X DAY)
     Route: 048
     Dates: start: 20160715
  29. BIOTIN [Concomitant]
     Active Substance: BIOTIN
     Indication: NUTRITIONAL SUPPLEMENTATION
     Dosage: 5000 UG, 1X/DAY
     Route: 048
     Dates: start: 20160715
  30. FOLIC ACID. [Concomitant]
     Active Substance: FOLIC ACID
     Indication: NUTRITIONAL SUPPLEMENTATION
     Dosage: 800 UG, 1X/DAY
     Route: 048
     Dates: start: 20160715
  31. DEXAMETHASONE. [Concomitant]
     Active Substance: DEXAMETHASONE
     Indication: INFLAMMATION
     Dosage: 4 MG, 1X/DAY (IN AM)
     Route: 048
     Dates: start: 20170220
  32. ADDERALL [Concomitant]
     Active Substance: AMPHETAMINE ASPARTATE\AMPHETAMINE SULFATE\DEXTROAMPHETAMINE SACCHARATE\DEXTROAMPHETAMINE SULFATE
     Indication: CENTRAL NERVOUS SYSTEM STIMULATION
     Dosage: 20 MG, 1X/DAY
     Route: 048
     Dates: start: 20161220
  33. CYCLOBENZAPRINE. [Concomitant]
     Active Substance: CYCLOBENZAPRINE
     Indication: MUSCLE RELAXANT THERAPY
     Dosage: 10 MG, 2X/DAY
     Route: 048
     Dates: start: 20160715
  34. FAMOTIDINE. [Concomitant]
     Active Substance: FAMOTIDINE
     Indication: GASTROOESOPHAGEAL REFLUX DISEASE
     Dosage: 20 MG, 1X/DAY
     Route: 048
     Dates: start: 20160715
  35. DILAUDID [Concomitant]
     Active Substance: HYDROMORPHONE HYDROCHLORIDE
     Indication: PAIN
     Dosage: 4 MG, AS NEEDED (Q4 HRS )
     Route: 048
     Dates: start: 20161110
  36. FENTANYL. [Concomitant]
     Active Substance: FENTANYL
     Indication: PAIN
     Dosage: 75 UG, [72HOURS (75MCG/HR PATCH, Q 72 HRS)
     Route: 062
     Dates: start: 20161110
  37. OXYGEN. [Concomitant]
     Active Substance: OXYGEN
     Indication: DYSPNOEA
     Dosage: UNK, AS NEEDED (2-41/MIN VIA NASAL CANNULA )
     Route: 045
     Dates: start: 20160715

REACTIONS (3)
  - Disease progression [Fatal]
  - Lung neoplasm malignant [Fatal]
  - Drug withdrawal syndrome [Unknown]
